FAERS Safety Report 5376655-4 (Version None)
Quarter: 2007Q2

REPORT INFORMATION
  Report Type: 
  Country: None (occurrence: None)
  Receive Date: 20070629
  Receipt Date: 20070619
  Transmission Date: 20071010
  Serious: Yes (Other)
  Sender: FDA-Public Use
  Company Number: 2007S1000168

PATIENT
  Age: 30 Year
  Sex: Female

DRUGS (1)
  1. ACITRETIN [Suspect]
     Indication: ICHTHYOSIS
     Dosage: PO
     Route: 048

REACTIONS (1)
  - MALIGNANT MELANOMA [None]
